FAERS Safety Report 17810033 (Version 4)
Quarter: 2021Q1

REPORT INFORMATION
  Report Type: Spontaneous
  Country: ES (occurrence: ES)
  Receive Date: 20200520
  Receipt Date: 20210202
  Transmission Date: 20210419
  Serious: Yes (Hospitalization)
  Sender: FDA-Public Use
  Company Number: ES-BIOGEN-2020BI00876048

PATIENT
  Age: 41 Year
  Sex: Male

DRUGS (3)
  1. SPINRAZA [Suspect]
     Active Substance: NUSINERSEN
     Dosage: 7TH DOSE
     Route: 037
     Dates: start: 20190916
  2. SPINRAZA [Suspect]
     Active Substance: NUSINERSEN
     Dosage: 8TH DOSE
     Route: 037
     Dates: start: 20200115
  3. SPINRAZA [Suspect]
     Active Substance: NUSINERSEN
     Indication: SPINAL MUSCULAR ATROPHY
     Route: 037
     Dates: start: 201807

REACTIONS (2)
  - Generalised tonic-clonic seizure [Recovered/Resolved]
  - Central nervous system lesion [Unknown]

NARRATIVE: CASE EVENT DATE: 20200512
